FAERS Safety Report 5676785-3 (Version None)
Quarter: 2008Q2

REPORT INFORMATION
  Report Type: 
  Country: None (occurrence: None)
  Receive Date: 20080311
  Receipt Date: 20080122
  Transmission Date: 20081010
  Serious: No
  Sender: FDA-Public Use
  Company Number: 002#2#2008-00026

PATIENT
  Age: 62 Year
  Sex: Female
  Weight: 62.5964 kg

DRUGS (7)
  1. NEUPRO [Suspect]
     Indication: PARKINSON'S DISEASE
     Dosage: 2MG/24H, 1 IN 1 D; 4MG/24H, 1IN 1 D; 6MG/24H, 1 IN 1 D; TRANSDERMAL
     Route: 062
     Dates: start: 20070701, end: 20070701
  2. NEUPRO [Suspect]
     Indication: PARKINSON'S DISEASE
     Dosage: 2MG/24H, 1 IN 1 D; 4MG/24H, 1IN 1 D; 6MG/24H, 1 IN 1 D; TRANSDERMAL
     Route: 062
     Dates: start: 20070701, end: 20070701
  3. NEUPRO [Suspect]
     Indication: PARKINSON'S DISEASE
     Dosage: 2MG/24H, 1 IN 1 D; 4MG/24H, 1IN 1 D; 6MG/24H, 1 IN 1 D; TRANSDERMAL
     Route: 062
     Dates: start: 20070701
  4. STALEVO 100 [Concomitant]
  5. SINEMET [Concomitant]
  6. AMANTADINE HCL [Concomitant]
  7. AZILECT [Concomitant]

REACTIONS (4)
  - APPLICATION SITE PRURITUS [None]
  - APPLICATION SITE REACTION [None]
  - PARKINSON'S DISEASE [None]
  - PHARMACEUTICAL PRODUCT COMPLAINT [None]
